FAERS Safety Report 5270487-3 (Version None)
Quarter: 2007Q1

REPORT INFORMATION
  Report Type: 
  Country: None (occurrence: None)
  Receive Date: 20070320
  Receipt Date: 20070315
  Transmission Date: 20070707
  Serious: Yes (Hospitalization)
  Sender: FDA-Public Use
  Company Number: US-MERCK-0703USA03175

PATIENT
  Age: 76 Year
  Sex: Male

DRUGS (3)
  1. JANUVIA [Suspect]
     Indication: DIABETES MELLITUS
     Route: 048
     Dates: start: 20070310
  2. VYTORIN [Concomitant]
     Route: 065
  3. SIMVASTATIN [Concomitant]
     Route: 065

REACTIONS (2)
  - FACIAL PALSY [None]
  - TREMOR [None]
